FAERS Safety Report 7264451-2 (Version None)
Quarter: 2011Q1

REPORT INFORMATION
  Report Type: 
  Country: None (occurrence: None)
  Receive Date: 20110131
  Receipt Date: 20110114
  Transmission Date: 20110831
  Serious: Yes (Hospitalization)
  Sender: FDA-Public Use
  Company Number: FR-JNJFOC-20110107299

PATIENT
  Sex: Female

DRUGS (12)
  1. ACETAMINOPHEN AND TRAMADOL HCL [Suspect]
     Indication: PRODUCT USED FOR UNKNOWN INDICATION
     Route: 048
  2. EFFERALGAN CODEINE [Suspect]
     Indication: PRODUCT USED FOR UNKNOWN INDICATION
     Route: 048
  3. CALCIUM CARBONATE W/COLECALCIFEROL [Concomitant]
  4. BECOTIDE [Concomitant]
  5. DOLIPRANE [Suspect]
     Indication: BACK PAIN
     Route: 065
  6. HYDROCORTISONE [Concomitant]
  7. DICLOFENAC [Suspect]
     Indication: PRODUCT USED FOR UNKNOWN INDICATION
     Route: 048
  8. VENTOLIN [Concomitant]
  9. THEOPHYLLINE [Concomitant]
  10. VERAPAMIL [Concomitant]
  11. LEVOTHYROX [Concomitant]
  12. TAHOR [Concomitant]

REACTIONS (1)
  - CHOLESTASIS [None]
